FAERS Safety Report 7924215-0 (Version None)
Quarter: 2011Q4

REPORT INFORMATION
  Report Type: 
  Country: None (occurrence: None)
  Receive Date: 20111117
  Receipt Date: 20110215
  Transmission Date: 20120403
  Serious: No
  Sender: FDA-Public Use
  Company Number: US-AMGEN-USASP2011008855

PATIENT
  Sex: Female

DRUGS (21)
  1. ENBREL [Suspect]
     Indication: PRODUCT USED FOR UNKNOWN INDICATION
     Dosage: 50 MG, QWK
     Route: 058
     Dates: start: 20101201
  2. ULTRAM ER [Concomitant]
     Dosage: 100 MG, UNK
  3. VICODIN HP [Concomitant]
     Dosage: UNK
  4. ACEROLA [Concomitant]
  5. VITAMIN E                          /00110501/ [Concomitant]
     Dosage: 1000 UNIT, UNK
  6. CINNAMON [Concomitant]
     Dosage: 500 MG, UNK
  7. VITAMIN C WITH ROSE HIPS [Concomitant]
  8. CRANBERRY                          /01512301/ [Concomitant]
     Dosage: 425 MG, UNK
  9. SULFASALAZINE [Concomitant]
     Dosage: 500 MG, UNK
  10. GINGER                             /01646602/ [Concomitant]
     Dosage: 500 MG, UNK
  11. MULTIVITAMIN                       /00097801/ [Concomitant]
  12. LEVOXYL [Concomitant]
     Dosage: 200 A?G, UNK
  13. RELAFEN [Concomitant]
     Dosage: 500 MG, UNK
  14. GLUCOPHAGE [Concomitant]
     Dosage: 850 MG, UNK
  15. FOLIC ACID [Concomitant]
     Dosage: 20 MG, UNK
  16. GLUCOSAMINE /CHOND                 /01639101/ [Concomitant]
  17. METHOTREXATE [Concomitant]
     Dosage: 2.5 MG, UNK
  18. ESTRADIOL                          /00045402/ [Concomitant]
     Dosage: 0.06 MG, UNK
  19. GARLIC                             /01570501/ [Concomitant]
     Dosage: 1500 MG, UNK
  20. MAGNESIUM OXIDE [Concomitant]
     Dosage: 400 MG, UNK
  21. ALBUTEROL [Concomitant]
     Dosage: 90 A?G, UNK

REACTIONS (2)
  - INJECTION SITE REACTION [None]
  - INJECTION SITE ERYTHEMA [None]
